FAERS Safety Report 5500044-2 (Version None)
Quarter: 2007Q4

REPORT INFORMATION
  Report Type: 
  Country: None (occurrence: None)
  Receive Date: 20071024
  Receipt Date: 20071009
  Transmission Date: 20080405
  Serious: Yes (Hospitalization)
  Sender: FDA-Public Use
  Company Number: 07-002065

PATIENT
  Age: 59 Year
  Sex: Male

DRUGS (2)
  1. TACLONEX(CALCIPOTRINE 0.005%, BETAMNETHASONE DIPROPIONATE 0.064%) OINT [Suspect]
  2. BISEPTINE/01186301(BENZALKONIUM CHLORIDE, BENZYL ALCOHOL, CHLORHEXIDIN [Suspect]

REACTIONS (2)
  - DERMATITIS CONTACT [None]
  - PUSTULAR PSORIASIS [None]
